FAERS Safety Report 7594036-X (Version None)
Quarter: 2011Q3

REPORT INFORMATION
  Report Type: 
  Country: None (occurrence: None)
  Receive Date: 20110706
  Receipt Date: 20110624
  Transmission Date: 20111222
  Serious: Yes (Other)
  Sender: FDA-Public Use
  Company Number: JP-BRISTOL-MYERS SQUIBB COMPANY-15863905

PATIENT
  Age: 75 Year
  Sex: Male

DRUGS (17)
  1. RANITIDINE [Concomitant]
  2. BUDESONIDE [Interacting]
     Indication: COLITIS
     Route: 048
  3. LEVOTHYROXINE SODIUM [Concomitant]
  4. VARDENAFIL HYDROCHLORIDE (LEVITRA) [Concomitant]
  5. NEVIRAPINE [Suspect]
     Indication: HIV INFECTION
  6. DIPHENOXYLATE HCL + ATROPINE SULFATE [Concomitant]
     Dosage: 1 DF:4/DAY
  7. TRAZODONE HCL [Concomitant]
  8. ATENOLOL [Concomitant]
  9. LOPERAMIDE [Concomitant]
  10. ATAZANAVIR [Interacting]
     Indication: HIV INFECTION
  11. LAMIVUDINE(PEPFAR) [Suspect]
     Indication: HIV INFECTION
  12. FONDAPARINUX SODIUM [Concomitant]
     Route: 058
  13. TESTOSTERONE [Concomitant]
     Dosage: PATCH
  14. CALCITRIOL [Concomitant]
  15. RITONAVIR [Interacting]
     Indication: HIV INFECTION
  16. CHOLECALCIFEROL [Concomitant]
     Dosage: 1 DF:400 UNITS
  17. LISINOPRIL [Concomitant]

REACTIONS (2)
  - DRUG INTERACTION [None]
  - CUSHING'S SYNDROME [None]
